FAERS Safety Report 9296155 (Version 2)
Quarter: 2014Q4

REPORT INFORMATION
  Report Type: Spontaneous
  Country: US (occurrence: US)
  Receive Date: 20130517
  Receipt Date: 20141016
  Transmission Date: 20150529
  Serious: Yes (Other)
  Sender: FDA-Public Use
  Company Number: US-GLAXOSMITHKLINE-A0774046A

PATIENT
  Sex: Female
  Weight: 100 kg

DRUGS (1)
  1. AVANDIA [Suspect]
     Active Substance: ROSIGLITAZONE MALEATE
     Indication: TYPE 2 DIABETES MELLITUS
     Dosage: 4 MG, BID
     Route: 048
     Dates: start: 20001102, end: 20070809

REACTIONS (3)
  - Coronary artery disease [Unknown]
  - Myocardial infarction [Unknown]
  - Cardiomyopathy [Unknown]
